FAERS Safety Report 15939416 (Version 1)
Quarter: 2019Q1

REPORT INFORMATION
  Report Type: Spontaneous
  Country: None (occurrence: US)
  Receive Date: 20190208
  Receipt Date: 20190208
  Transmission Date: 20190417
  Serious: No
  Sender: FDA-Public Use
  Company Number: US-AKRON, INC.-2062384

PATIENT

DRUGS (1)
  1. COSOPT PF [Suspect]
     Active Substance: DORZOLAMIDE HYDROCHLORIDE\TIMOLOL MALEATE
     Route: 047

REACTIONS (4)
  - Eye irritation [Unknown]
  - Lacrimation increased [Unknown]
  - Eye pruritus [Unknown]
  - Ocular hyperaemia [Unknown]
